FAERS Safety Report 17386594 (Version 1)
Quarter: 2020Q1

REPORT INFORMATION
  Report Type: Report from Study
  Country: CA (occurrence: CA)
  Receive Date: 20200206
  Receipt Date: 20200206
  Transmission Date: 20200409
  Serious: Yes (Death)
  Sender: FDA-Public Use
  Company Number: CA-PFIZER INC-2020055276

PATIENT
  Age: 63 Year
  Sex: Female

DRUGS (3)
  1. BEVACIZUMAB. [Suspect]
     Active Substance: BEVACIZUMAB
     Indication: LUNG NEOPLASM MALIGNANT
  2. BEVACIZUMAB. [Suspect]
     Active Substance: BEVACIZUMAB
     Indication: RESPIRATORY TRACT CARCINOMA IN SITU
     Dosage: 465 MG, UNK [1 EVERY 3 WEEKS]
     Route: 042
  3. OSIMERTINIB. [Concomitant]
     Active Substance: OSIMERTINIB
     Dosage: UNK

REACTIONS (1)
  - Death [Fatal]
